FAERS Safety Report 20683623 (Version 1)
Quarter: 2022Q2

REPORT INFORMATION
  Report Type: Spontaneous
  Country: JP (occurrence: JP)
  Receive Date: 20220407
  Receipt Date: 20220407
  Transmission Date: 20220721
  Serious: Yes (Hospitalization)
  Sender: FDA-Public Use
  Company Number: JP-DSJP-DSJ-2022-111474

PATIENT
  Age: 83 Year
  Sex: Female

DRUGS (1)
  1. DENOSUMAB [Suspect]
     Active Substance: DENOSUMAB
     Indication: Product used for unknown indication
     Dosage: UNK,2020/12/08,2021/04/08,12/21
     Route: 065
     Dates: start: 20201208

REACTIONS (7)
  - Spinal stenosis [Recovered/Resolved]
  - Temporomandibular joint syndrome [Recovered/Resolved]
  - Musculoskeletal stiffness [Recovered/Resolved]
  - Facial discomfort [Not Recovered/Not Resolved]
  - Gingival injury [Not Recovered/Not Resolved]
  - Gingival pain [Not Recovered/Not Resolved]
  - Toothache [Unknown]
